FAERS Safety Report 9794361 (Version 3)
Quarter: 2019Q1

REPORT INFORMATION
  Report Type: Spontaneous
  Country: DK (occurrence: DK)
  Receive Date: 20140102
  Receipt Date: 20190118
  Transmission Date: 20190418
  Serious: Yes (Hospitalization, Disabling, Other)
  Sender: FDA-Public Use
  Company Number: DK-BAYER-200931796GPV

PATIENT
  Age: 65 Year
  Sex: Male
  Weight: 79 kg

DRUGS (28)
  1. INSULIN HUMAN INJECTION, ISOPHANE [Concomitant]
     Active Substance: INSULIN HUMAN
     Indication: DIABETES MELLITUS
  2. NEORECORMON [Concomitant]
     Active Substance: ERYTHROPOIETIN
  3. IMOCLONE [Concomitant]
     Active Substance: ZOPICLONE
     Dosage: 7.5 MG
     Route: 048
  4. PHOS-EX [Concomitant]
  5. ATRAPID [Concomitant]
     Indication: DIABETES MELLITUS
     Route: 058
  6. MACROGOL;POTASSIUM CHLORIDE;SODIUM BICARBONATE;SODIUM CHLORIDE [Concomitant]
     Route: 048
  7. SIMVASTATINE [Concomitant]
     Active Substance: SIMVASTATIN
  8. PANTOLOC [PANTOPRAZOLE] [Concomitant]
     Active Substance: PANTOPRAZOLE SODIUM
  9. ACTRAPID [Concomitant]
     Active Substance: INSULIN HUMAN
     Route: 058
  10. GADOVIST [Suspect]
     Active Substance: GADOBUTROL
     Indication: SCAN WITH CONTRAST
     Dosage: 1 MILLIMOLE (S)/ML
     Route: 042
     Dates: start: 20080221, end: 20080221
  11. FURIX [Concomitant]
     Active Substance: FUROSEMIDE
  12. NITROGLYCERIN. [Concomitant]
     Active Substance: NITROGLYCERIN
     Route: 060
  13. MAGNYL [ACETYLSALICYLIC ACID] [Concomitant]
  14. ISODUR [Concomitant]
     Route: 048
  15. ALNOK [Concomitant]
     Active Substance: CETIRIZINE HYDROCHLORIDE
     Route: 048
  16. PARACETAMOL [Concomitant]
     Active Substance: ACETAMINOPHEN
  17. PLAVIX [Concomitant]
     Active Substance: CLOPIDOGREL BISULFATE
  18. VITAMIN B-COMPLEX [VITAMIN B COMPLEX] [Concomitant]
  19. OMNISCAN [Suspect]
     Active Substance: GADODIAMIDE
     Indication: NUCLEAR MAGNETIC RESONANCE IMAGING
     Dosage: 0,5 MILLIMOLE (S)/ML
     Route: 042
     Dates: start: 20010607, end: 20010607
  20. MIRTAZAPINE. [Concomitant]
     Active Substance: MIRTAZAPINE
  21. AKARIN [Concomitant]
     Active Substance: CITALOPRAM HYDROBROMIDE
  22. SIMVASTATIN. [Concomitant]
     Active Substance: SIMVASTATIN
  23. GLYCERYL TRINITRATE [Concomitant]
     Active Substance: NITROGLYCERIN
  24. OMNISCAN [Suspect]
     Active Substance: GADODIAMIDE
     Indication: PERIPHERAL ARTERIAL OCCLUSIVE DISEASE
  25. VENOFER [Concomitant]
     Active Substance: IRON SUCROSE
     Route: 042
  26. MOVICOL [MACROGOL;POTASSIUM CHLORIDE;SODIUM BICARBONATE;SODIUM CHLORID [Concomitant]
     Route: 048
  27. ACETYLSALICYLIC ACID [Concomitant]
     Active Substance: ASPIRIN
  28. INSULIN [Concomitant]
     Active Substance: INSULIN NOS

REACTIONS (29)
  - Toe amputation [Unknown]
  - Abscess limb [Unknown]
  - Septic shock [Unknown]
  - Pain [Not Recovered/Not Resolved]
  - Nephrogenic systemic fibrosis [Not Recovered/Not Resolved]
  - Fine motor skill dysfunction [Not Recovered/Not Resolved]
  - Skin wound [Not Recovered/Not Resolved]
  - Blood pressure increased [Unknown]
  - Clostridium difficile infection [Unknown]
  - Finger amputation [Unknown]
  - Myalgia [Not Recovered/Not Resolved]
  - Peau d^orange [Not Recovered/Not Resolved]
  - Pulmonary oedema [Unknown]
  - Limb injury [Unknown]
  - Bacterial test positive [Unknown]
  - Pain in extremity [Not Recovered/Not Resolved]
  - Skin induration [Not Recovered/Not Resolved]
  - Gait disturbance [Not Recovered/Not Resolved]
  - Abdominal pain [Unknown]
  - Sensory disturbance [Not Recovered/Not Resolved]
  - Mobility decreased [Not Recovered/Not Resolved]
  - Peritonitis [Not Recovered/Not Resolved]
  - Pyrexia [Unknown]
  - Fluid overload [Unknown]
  - Blister [Not Recovered/Not Resolved]
  - Skin hypertrophy [Not Recovered/Not Resolved]
  - C-reactive protein increased [Unknown]
  - Ascites [Unknown]
  - Wound [Unknown]

NARRATIVE: CASE EVENT DATE: 20080227
